FAERS Safety Report 6859156-3 (Version None)
Quarter: 2010Q3

REPORT INFORMATION
  Report Type: 
  Country: None (occurrence: None)
  Receive Date: 20100719
  Receipt Date: 20080221
  Transmission Date: 20110219
  Serious: No
  Sender: FDA-Public Use
  Company Number: US-PFIZER INC-2008017902

PATIENT
  Age: 19 Year
  Sex: Female
  Weight: 74.1 kg

DRUGS (3)
  1. CHANTIX [Suspect]
     Indication: SMOKING CESSATION THERAPY
     Route: 048
     Dates: start: 20080207
  2. YASMIN [Concomitant]
     Route: 048
  3. RISPERDAL [Concomitant]

REACTIONS (1)
  - MIDDLE INSOMNIA [None]
